FAERS Safety Report 6723032-7 (Version None)
Quarter: 2010Q2

REPORT INFORMATION
  Report Type: 
  Country: None (occurrence: None)
  Receive Date: 20100513
  Receipt Date: 20100506
  Transmission Date: 20101027
  Serious: No
  Sender: FDA-Public Use
  Company Number: US-BIOGENIDEC-2010BI015558

PATIENT
  Sex: Female

DRUGS (2)
  1. TYSABRI [Suspect]
     Indication: MULTIPLE SCLEROSIS
     Route: 042
     Dates: start: 20050207, end: 20050207
  2. TYSABRI [Suspect]
     Route: 042
     Dates: start: 20070806

REACTIONS (6)
  - DRUG INEFFECTIVE [None]
  - FATIGUE [None]
  - MUSCULOSKELETAL PAIN [None]
  - PERONEAL NERVE PALSY [None]
  - THROMBOPHLEBITIS SUPERFICIAL [None]
  - VERTIGO [None]
